FAERS Safety Report 8483083-1 (Version None)
Quarter: 2012Q3

REPORT INFORMATION
  Report Type: 
  Country: None (occurrence: None)
  Receive Date: 20120702
  Receipt Date: 20120627
  Transmission Date: 20120928
  Serious: Yes (Life-Threatening, Hospitalization)
  Sender: FDA-Public Use
  Company Number: US-ROCHE-1078187

PATIENT
  Sex: Male
  Weight: 86.26 kg

DRUGS (6)
  1. PRAVASTATIN [Concomitant]
     Route: 048
  2. RANIBIZUMAB [Suspect]
     Indication: DIABETIC RETINAL OEDEMA
     Route: 050
     Dates: start: 20120203
  3. TICAGRELOR [Concomitant]
  4. NOVALES [Concomitant]
     Dosage: DOSE 100UNITS
     Route: 058
  5. LEVEMIR [Concomitant]
     Dosage: DOSE 20 UNITS
     Route: 058
  6. CYMBALTA [Concomitant]
     Route: 048

REACTIONS (1)
  - MYOCARDIAL INFARCTION [None]
